FAERS Safety Report 15479364 (Version 1)
Quarter: 2018Q4

REPORT INFORMATION
  Report Type: Spontaneous
  Country: GB (occurrence: GB)
  Receive Date: 20181009
  Receipt Date: 20181009
  Transmission Date: 20190205
  Serious: Yes (Other)
  Sender: FDA-Public Use
  Company Number: GB-MYLANLABS-2018M1074044

PATIENT
  Age: 41 Year
  Sex: Female
  Weight: 94 kg

DRUGS (2)
  1. CITALOPRAM [Suspect]
     Active Substance: CITALOPRAM HYDROBROMIDE
     Dosage: 20 MG, UNK
     Route: 048
  2. CITALOPRAM [Suspect]
     Active Substance: CITALOPRAM HYDROBROMIDE
     Indication: PRODUCT USED FOR UNKNOWN INDICATION
     Dosage: 10 MG, UNK
     Route: 048

REACTIONS (10)
  - Feeling abnormal [Unknown]
  - Binge eating [Not Recovered/Not Resolved]
  - Abnormal weight gain [Not Recovered/Not Resolved]
  - Decreased interest [Unknown]
  - Fatigue [Unknown]
  - Food craving [Not Recovered/Not Resolved]
  - Slow response to stimuli [Unknown]
  - Decreased appetite [Not Recovered/Not Resolved]
  - Thinking abnormal [Unknown]
  - Disturbance in attention [Unknown]
